FAERS Safety Report 9399327 (Version 1)
Quarter: 2013Q3

REPORT INFORMATION
  Report Type: Spontaneous
  Country: US (occurrence: US)
  Receive Date: 20130715
  Receipt Date: 20130715
  Transmission Date: 20140515
  Serious: No
  Sender: FDA-Public Use
  Company Number: US-PFIZER INC-2013204520

PATIENT
  Sex: Female

DRUGS (2)
  1. GABAPENTIN [Suspect]
     Indication: AUTOIMMUNE NEUROPATHY
     Dosage: 600 MG (2 CAPSULES OF 300MG), 3X/DAY
     Route: 048
  2. GABAPENTIN [Suspect]
     Dosage: 600 MG, 4X/DAY
     Route: 048

REACTIONS (2)
  - Off label use [Unknown]
  - Drug ineffective for unapproved indication [Unknown]
